FAERS Safety Report 6992115-9 (Version None)
Quarter: 2010Q3

REPORT INFORMATION
  Report Type: 
  Country: None (occurrence: None)
  Receive Date: 20100917
  Receipt Date: 20100903
  Transmission Date: 20110219
  Serious: Yes (Death)
  Sender: FDA-Public Use
  Company Number: JP-RANBAXY-2010RR-38128

PATIENT
  Age: 33 Year
  Sex: Male

DRUGS (25)
  1. ACETAMINOPHEN [Suspect]
  2. VEGETAMIN-A [Suspect]
  3. DEPAS [Suspect]
  4. PERPHENAZINE [Suspect]
  5. ANAFRANIL [Suspect]
  6. SURMONTIL [Suspect]
  7. DEPROMEL [Suspect]
  8. CERCINE [Suspect]
  9. TOLEDOMIN [Suspect]
  10. NORTRIPTYLINE HCL [Suspect]
  11. ROHYPNOL [Suspect]
  12. LENDORM [Suspect]
  13. RIZE [Suspect]
  14. MEILAX [Suspect]
  15. SEDIEL [Suspect]
  16. DIHYDROCODEINE, METHYLEPHEDRINE, CHLORPHENAMINE, CAFFEINE [Suspect]
  17. PARACETAMOL, DIHYDROCODEINE, METHYLEPHEDRINE HYDROCHLORIDE, CAFFEINE [Suspect]
  18. METHYLEPHEDRINE [Suspect]
  19. DIHYDROCODEINE [Suspect]
  20. CLOTIAZEPAM [Suspect]
  21. CLOMIPRAMINE [Suspect]
  22. CHLORPROMAZINE [Suspect]
  23. PHENOBARBITAL [Suspect]
  24. PROMETHAZINE [Suspect]
  25. CAFFEINE [Suspect]

REACTIONS (2)
  - DEATH [None]
  - DRUG TOXICITY [None]
